FAERS Safety Report 12276184 (Version 9)
Quarter: 2017Q2

REPORT INFORMATION
  Report Type: Spontaneous
  Country: FR (occurrence: FR)
  Receive Date: 20160418
  Receipt Date: 20170621
  Transmission Date: 20170830
  Serious: Yes (Hospitalization, Other)
  Sender: FDA-Public Use
  Company Number: FR-TAKEDA-2016TUS006291

PATIENT
  Age: 20 Year
  Sex: Female

DRUGS (9)
  1. CEFUROXIME. [Concomitant]
     Active Substance: CEFUROXIME
     Indication: RESPIRATORY TRACT INFECTION
     Dosage: UNK
     Dates: start: 20160119, end: 20160122
  2. AERIUS [Concomitant]
     Active Substance: DESLORATADINE
     Indication: PRODUCT USED FOR UNKNOWN INDICATION
     Dosage: UNK
  3. ENTYVIO [Suspect]
     Active Substance: VEDOLIZUMAB
     Indication: CROHN^S DISEASE
     Dosage: 300 MG, UNK
     Route: 042
     Dates: start: 20151216, end: 20160127
  4. HELICIDINE [Concomitant]
     Active Substance: ESCARGOT
     Indication: PRODUCT USED FOR UNKNOWN INDICATION
     Dosage: UNK
  5. LEVOFLOXACIN. [Suspect]
     Active Substance: LEVOFLOXACIN
     Indication: RESPIRATORY TRACT INFECTION
     Dosage: 500 MG, QD
     Route: 048
     Dates: start: 20160122, end: 20160131
  6. VOGALENE [Concomitant]
     Active Substance: METOPIMAZINE
     Indication: PRODUCT USED FOR UNKNOWN INDICATION
     Dosage: UNK
     Dates: start: 20160119
  7. TOPLEXIL [Suspect]
     Active Substance: UNSPECIFIED INGREDIENT
     Indication: COUGH
     Dosage: UNK
     Route: 048
     Dates: start: 20160122
  8. ENTOCORT [Concomitant]
     Active Substance: BUDESONIDE
     Indication: PRODUCT USED FOR UNKNOWN INDICATION
     Dosage: UNK, BID
     Route: 048
  9. CODOLIPRANE [Suspect]
     Active Substance: ACETAMINOPHEN\CODEINE PHOSPHATE
     Indication: ARTHRALGIA

REACTIONS (15)
  - Respiratory tract infection [Recovered/Resolved]
  - Paraparesis [Unknown]
  - Neuralgia [Unknown]
  - Abasia [Not Recovered/Not Resolved]
  - Dystonia [Not Recovered/Not Resolved]
  - Apathy [Unknown]
  - Parkinson^s disease [Not Recovered/Not Resolved]
  - Tremor [Unknown]
  - Loss of consciousness [Recovered/Resolved]
  - Facial paralysis [Not Recovered/Not Resolved]
  - Muscular weakness [Recovering/Resolving]
  - Nausea [Unknown]
  - Vertigo [Recovered/Resolved]
  - Hypokinesia [Unknown]
  - Hemiparesis [Unknown]

NARRATIVE: CASE EVENT DATE: 2016
